FAERS Safety Report 16878124 (Version 4)
Quarter: 2019Q4

REPORT INFORMATION
  Report Type: Report from Study
  Country: DO (occurrence: DO)
  Receive Date: 20191002
  Receipt Date: 20191223
  Transmission Date: 20200122
  Serious: Yes (Congenital Anomaly, Other)
  Sender: FDA-Public Use
  Company Number: DO-009507513-1910DOM002165

PATIENT
  Age: 0 Day
  Sex: Male

DRUGS (1)
  1. ISENTRESS [Suspect]
     Active Substance: RALTEGRAVIR POTASSIUM
     Dosage: UNK
     Route: 064
     Dates: start: 20180801

REACTIONS (2)
  - Foetal exposure during pregnancy [Recovered/Resolved]
  - Syndactyly [Unknown]

NARRATIVE: CASE EVENT DATE: 20190924
